FAERS Safety Report 19424554 (Version 5)
Quarter: 2021Q4

REPORT INFORMATION
  Report Type: Report from Study
  Country: SG (occurrence: SG)
  Receive Date: 20210616
  Receipt Date: 20211129
  Transmission Date: 20220303
  Serious: Yes (Other)
  Sender: FDA-Public Use
  Company Number: SG-JNJFOC-20210347424

PATIENT
  Sex: Female

DRUGS (3)
  1. ERDAFITINIB [Suspect]
     Active Substance: ERDAFITINIB
     Indication: Transitional cell carcinoma metastatic
     Route: 065
     Dates: start: 20210113, end: 20210127
  2. ERDAFITINIB [Suspect]
     Active Substance: ERDAFITINIB
     Route: 065
     Dates: start: 20210218, end: 20210322
  3. ERDAFITINIB [Suspect]
     Active Substance: ERDAFITINIB
     Dosage: RESTARTED AT 4 NG
     Route: 065
     Dates: start: 20210422, end: 20210517

REACTIONS (1)
  - Retinitis [Unknown]

NARRATIVE: CASE EVENT DATE: 20210517
